FAERS Safety Report 6410803-X (Version None)
Quarter: 2009Q4

REPORT INFORMATION
  Report Type: 
  Country: None (occurrence: None)
  Receive Date: 20091022
  Receipt Date: 20091019
  Transmission Date: 20100525
  Serious: Yes (Hospitalization)
  Sender: FDA-Public Use
  Company Number: CHNY2009DE03094

PATIENT
  Sex: Female

DRUGS (2)
  1. SCOPODERM TTS (NCH) [Suspect]
     Indication: SALIVARY HYPERSECRETION
     Dosage: UNK
     Route: 062
  2. TRICYCLIC ANTIDEPRESSANTS [Concomitant]
     Dosage: LOW DOSE

REACTIONS (1)
  - VISUAL IMPAIRMENT [None]
